FAERS Safety Report 5507656-0 (Version None)
Quarter: 2007Q4

REPORT INFORMATION
  Report Type: 
  Country: None (occurrence: None)
  Receive Date: 20071106
  Receipt Date: 20071025
  Transmission Date: 20080405
  Serious: Yes (Death)
  Sender: FDA-Public Use
  Company Number: DE-JNJFOC-20071007699

PATIENT
  Age: 22 Year
  Sex: Female

DRUGS (2)
  1. DEXTROMETHORPHAN HYDROBROMIDE [Suspect]
     Indication: INTENTIONAL DRUG MISUSE
     Dosage: UNKNOWN
  2. COCAINE [Interacting]
     Indication: INTENTIONAL DRUG MISUSE
     Dosage: UNKNOWN

REACTIONS (3)
  - DRUG INTERACTION [None]
  - DRUG TOXICITY [None]
  - INTENTIONAL DRUG MISUSE [None]
